FAERS Safety Report 16509811 (Version 1)
Quarter: 2019Q3

REPORT INFORMATION
  Report Type: Spontaneous
  Country: US (occurrence: US)
  Receive Date: 20190702
  Receipt Date: 20190702
  Transmission Date: 20191004
  Serious: No
  Sender: FDA-Public Use
  Company Number: US-B.I. PHARMACEUTICALS,INC./RIDGEFIELD-2019-US-000178

PATIENT
  Sex: Female

DRUGS (1)
  1. COMBIVENT [Suspect]
     Active Substance: ALBUTEROL SULFATE\IPRATROPIUM BROMIDE
     Indication: PRODUCT USED FOR UNKNOWN INDICATION
     Dosage: FORM: INHALATION SPRAY
     Route: 065
     Dates: start: 201106

REACTIONS (3)
  - Malaise [Unknown]
  - Diarrhoea [Not Recovered/Not Resolved]
  - Influenza [Not Recovered/Not Resolved]

NARRATIVE: CASE EVENT DATE: 201906
